FAERS Safety Report 5169569-6 (Version None)
Quarter: 2006Q4

REPORT INFORMATION
  Report Type: 
  Country: None (occurrence: None)
  Receive Date: 20061204
  Receipt Date: 20061128
  Transmission Date: 20070319
  Serious: Yes (Hospitalization)
  Sender: FDA-Public Use
  Company Number: 163-20785-06090902

PATIENT
  Age: 58 Year
  Sex: Female

DRUGS (5)
  1. THALOMID [Suspect]
     Indication: ARTERIOVENOUS MALFORMATION
     Dosage: 100 MG, 2 IN 1 D, ORAL
     Route: 048
     Dates: start: 20060815
  2. LASIX [Concomitant]
  3. ALDACTONE [Concomitant]
  4. ADVAIR (SERETIDE MITE) [Concomitant]
  5. OXYGEN (OXYGEN) [Concomitant]

REACTIONS (1)
  - FLUID OVERLOAD [None]
